FAERS Safety Report 10639072 (Version 1)
Quarter: 2014Q4

REPORT INFORMATION
  Report Type: Spontaneous
  Country: BR (occurrence: BR)
  Receive Date: 20141208
  Receipt Date: 20141208
  Transmission Date: 20150529
  Serious: Yes (Other)
  Sender: FDA-Public Use
  Company Number: BR-PFIZER INC-2014334209

PATIENT
  Age: 51 Year
  Sex: Male
  Weight: 74 kg

DRUGS (3)
  1. ATENOLOL. [Concomitant]
     Active Substance: ATENOLOL
     Indication: INFARCTION
     Dosage: ONE TABLET A DAY
     Dates: start: 2001
  2. AAS, INFANT PRESENTATION [Concomitant]
     Indication: BLOOD DISORDER
     Dosage: ONE TABLET A DAY
     Dates: start: 2001
  3. CHAMPIX [Suspect]
     Active Substance: VARENICLINE TARTRATE
     Indication: SMOKING CESSATION THERAPY
     Dosage: 1 MG, ON ALTERNATE DAYS
     Route: 048
     Dates: start: 201202

REACTIONS (1)
  - Drug dependence [Not Recovered/Not Resolved]

NARRATIVE: CASE EVENT DATE: 201202
